FAERS Safety Report 4681708-X (Version None)
Quarter: 2005Q2

REPORT INFORMATION
  Report Type: 
  Country: None (occurrence: None)
  Receive Date: 20050603
  Receipt Date: 20050303
  Transmission Date: 20051028
  Serious: Yes (Life-Threatening, Hospitalization, Disabling)
  Sender: FDA-Public Use
  Company Number: US-MERCK-0503USA00842

PATIENT
  Age: 69 Year
  Sex: Male
  Weight: 111 kg

DRUGS (9)
  1. VIOXX [Suspect]
     Indication: OSTEOARTHRITIS
     Route: 048
     Dates: start: 19990601, end: 20001001
  2. VIOXX [Suspect]
     Route: 065
     Dates: start: 20001001
  3. ALLEGRA D 24 HOUR [Concomitant]
     Route: 065
  4. [THERAPY UNSPECIFIED] [Concomitant]
     Route: 065
  5. NAPROXEN [Concomitant]
     Route: 065
  6. RELAFEN [Concomitant]
     Route: 065
  7. PRINIVIL [Concomitant]
     Route: 065
  8. ATENOLOL MSD [Concomitant]
     Route: 065
  9. PRILOSEC [Concomitant]
     Route: 065

REACTIONS (46)
  - ABDOMINAL PAIN UPPER [None]
  - ANXIETY [None]
  - ARTHROPATHY [None]
  - ASTHENIA [None]
  - ATRIAL FIBRILLATION [None]
  - BACK PAIN [None]
  - BENIGN PROSTATIC HYPERPLASIA [None]
  - BEZOAR [None]
  - BLOOD POTASSIUM DECREASED [None]
  - BLOOD PRESSURE DIASTOLIC DECREASED [None]
  - CARDIAC DISORDER [None]
  - CARDIOMYOPATHY [None]
  - CHEST PAIN [None]
  - CHOLECYSTITIS ACUTE [None]
  - CHOLELITHIASIS [None]
  - CONTUSION [None]
  - CORONARY ARTERY ATHEROSCLEROSIS [None]
  - CORONARY ARTERY DISEASE [None]
  - CORONARY ARTERY STENOSIS [None]
  - DIABETES MELLITUS NON-INSULIN-DEPENDENT [None]
  - DIZZINESS [None]
  - DYSPHAGIA [None]
  - DYSPNOEA [None]
  - EMOTIONAL DISTRESS [None]
  - FEELING ABNORMAL [None]
  - GASTRITIS [None]
  - HEART RATE INCREASED [None]
  - HYPERHIDROSIS [None]
  - HYPERLIPIDAEMIA [None]
  - HYPERTENSION [None]
  - INJURY [None]
  - INSULIN RESISTANCE [None]
  - INTESTINAL POLYP [None]
  - LOW DENSITY LIPOPROTEIN INCREASED [None]
  - MUSCLE SPASMS [None]
  - MYOCARDIAL INFARCTION [None]
  - NAUSEA [None]
  - OESOPHAGEAL DISORDER [None]
  - PAIN [None]
  - PALPITATIONS [None]
  - PERIPHERAL VASCULAR DISORDER [None]
  - RENAL CYST [None]
  - SACROILIITIS [None]
  - SINUS BRADYCARDIA [None]
  - STENT PLACEMENT [None]
  - WHITE BLOOD CELL COUNT INCREASED [None]
